FAERS Safety Report 6688124-X (Version None)
Quarter: 2010Q2

REPORT INFORMATION
  Report Type: 
  Country: None (occurrence: None)
  Receive Date: 20100420
  Receipt Date: 20100409
  Transmission Date: 20101027
  Serious: Yes (Hospitalization)
  Sender: FDA-Public Use
  Company Number: HU-PFIZER INC-2010046105

PATIENT
  Sex: Female

DRUGS (1)
  1. ZMAX [Suspect]
     Indication: SINUSITIS
     Dosage: 2 G, 1X/DAY
     Route: 048
     Dates: start: 20100218, end: 20100218

REACTIONS (2)
  - DIARRHOEA [None]
  - EPISTAXIS [None]
